FAERS Safety Report 6450006-6 (Version None)
Quarter: 2009Q4

REPORT INFORMATION
  Report Type: 
  Country: None (occurrence: None)
  Receive Date: 20091120
  Receipt Date: 20091120
  Transmission Date: 20100525
  Serious: Yes (Other)
  Sender: FDA-Public Use
  Company Number: None

PATIENT
  Sex: Male
  Weight: 74.8435 kg

DRUGS (1)
  1. VICKS [Suspect]
     Indication: NASAL CONGESTION
     Dosage: TWICE A DAY NASAL
     Route: 045
     Dates: start: 20091106, end: 20091119

REACTIONS (1)
  - NASOPHARYNGITIS [None]
